FAERS Safety Report 8951279 (Version 2)
Quarter: 2014Q1

REPORT INFORMATION
  Report Type: Spontaneous
  Country: US (occurrence: US)
  Receive Date: 20121207
  Receipt Date: 20140331
  Transmission Date: 20141002
  Serious: Yes (Hospitalization)
  Sender: FDA-Public Use
  Company Number: US-ASTELLAS-2012US011856

PATIENT
  Age: 60 Year
  Sex: Female

DRUGS (1)
  1. PROGRAF [Suspect]
     Indication: LIVER TRANSPLANT
     Dosage: 3 MG, BID
     Route: 048

REACTIONS (6)
  - Pneumonia aspiration [Unknown]
  - Aspiration [Unknown]
  - Nephrolithiasis [Unknown]
  - Pneumonia aspiration [Unknown]
  - Head injury [Unknown]
  - Coma [Unknown]
